FAERS Safety Report 11973030 (Version 1)
Quarter: 2016Q1

REPORT INFORMATION
  Report Type: Spontaneous
  Country: CA (occurrence: CA)
  Receive Date: 20160128
  Receipt Date: 20160128
  Transmission Date: 20160526
  Serious: Yes (Life-Threatening, Hospitalization)
  Sender: FDA-Public Use
  Company Number: CA-TEVA-628526ACC

PATIENT
  Age: 85 Year
  Sex: Male
  Weight: 61 kg

DRUGS (11)
  1. FERROUS GLUCONATE [Concomitant]
     Active Substance: FERROUS GLUCONATE
  2. AMIODARONE [Concomitant]
     Active Substance: AMIODARONE
  3. RAMIPRIL. [Concomitant]
     Active Substance: RAMIPRIL
  4. METOPROLOL. [Concomitant]
     Active Substance: METOPROLOL
  5. ULORIC [Concomitant]
     Active Substance: FEBUXOSTAT
  6. ROSUVASTATIN [Concomitant]
     Active Substance: ROSUVASTATIN
  7. WARFARIN [Concomitant]
     Active Substance: WARFARIN
  8. FUROSEMIDE. [Concomitant]
     Active Substance: FUROSEMIDE
  9. FOLIC ACID. [Concomitant]
     Active Substance: FOLIC ACID
  10. SENOKOT [Concomitant]
     Active Substance: SENNOSIDES
  11. CYCLOBENZAPRINE [Suspect]
     Active Substance: CYCLOBENZAPRINE
     Indication: MUSCULOSKELETAL PAIN
     Dosage: 30 MILLIGRAM DAILY;
     Route: 048

REACTIONS (9)
  - Dizziness [Unknown]
  - Hallucination [Unknown]
  - Dysuria [Unknown]
  - Fall [Unknown]
  - Memory impairment [Unknown]
  - Confusional state [Unknown]
  - Malaise [Unknown]
  - Pollakiuria [Unknown]
  - Hypotension [Unknown]
